FAERS Safety Report 7660288-0 (Version None)
Quarter: 2011Q3

REPORT INFORMATION
  Report Type: 
  Country: None (occurrence: None)
  Receive Date: 20110805
  Receipt Date: 20110726
  Transmission Date: 20111222
  Serious: Yes (Other)
  Sender: FDA-Public Use
  Company Number: US-ABBOTT-11P-163-0841928-02

PATIENT
  Sex: Female

DRUGS (14)
  1. METOPROLOL TARTRATE [Concomitant]
     Indication: HYPERTENSION
  2. HUMIRA [Suspect]
     Dosage: BASELINE
     Route: 058
  3. HUMIRA [Suspect]
     Dosage: WEEK 2
     Route: 058
  4. ELMIRON [Concomitant]
     Indication: CYSTITIS INTERSTITIAL
  5. HUMIRA [Suspect]
     Indication: CROHN'S DISEASE
     Route: 058
     Dates: start: 20091020
  6. LOMOTIL [Concomitant]
     Indication: DIARRHOEA
  7. HUMIRA [Suspect]
     Route: 058
     Dates: end: 20100202
  8. PROSED/DS [Concomitant]
     Indication: TUBULOINTERSTITIAL NEPHRITIS
  9. CLONAZEPAM [Concomitant]
     Indication: RESTLESS LEGS SYNDROME
  10. PREDNISONE [Concomitant]
     Indication: CROHN'S DISEASE
  11. HYDROXYZINE HCL [Concomitant]
     Indication: PRODUCT USED FOR UNKNOWN INDICATION
  12. ZYRTEC [Concomitant]
     Indication: HYPERSENSITIVITY
  13. NEXIUM [Concomitant]
     Indication: DYSPEPSIA
  14. ASPIRIN [Concomitant]
     Indication: MYOCARDIAL INFARCTION

REACTIONS (1)
  - LIVER FUNCTION TEST ABNORMAL [None]
